FAERS Safety Report 12082831 (Version 1)
Quarter: 2016Q1

REPORT INFORMATION
  Report Type: Spontaneous
  Country: US (occurrence: None)
  Receive Date: 20160216
  Receipt Date: 20160216
  Transmission Date: 20160526
  Serious: Yes (Other)
  Sender: FDA-Public Use
  Company Number: None

PATIENT
  Age: 60 Year
  Sex: Female
  Weight: 54.43 kg

DRUGS (9)
  1. RED YEAST RICE COMPLEX [Concomitant]
  2. ASPRIN [Concomitant]
     Active Substance: ASPIRIN
  3. PROAIR-HFA INHALER [Concomitant]
  4. VIT. D3 [Concomitant]
  5. PENNSAID [Suspect]
     Active Substance: DICLOFENAC SODIUM
     Indication: SOFT TISSUE INFLAMMATION
     Dosage: 2 PUMP TWICE A DAY ON SKIN
     Route: 061
     Dates: start: 20160120, end: 20160120
  6. OMEPRAZOLE. [Concomitant]
     Active Substance: OMEPRAZOLE
  7. STOOL SOFTENER [Concomitant]
     Active Substance: DOCUSATE CALCIUM
  8. ADVAIR HFA [Concomitant]
     Active Substance: FLUTICASONE PROPIONATE\SALMETEROL XINAFOATE
  9. FLONASE [Concomitant]
     Active Substance: FLUTICASONE PROPIONATE

REACTIONS (1)
  - Application site pruritus [None]

NARRATIVE: CASE EVENT DATE: 20160119
